FAERS Safety Report 6433967-0 (Version None)
Quarter: 2009Q4

REPORT INFORMATION
  Report Type: 
  Country: None (occurrence: None)
  Receive Date: 20091110
  Receipt Date: 20091105
  Transmission Date: 20100525
  Serious: Yes (Hospitalization, Other)
  Sender: FDA-Public Use
  Company Number: US-BRISTOL-MYERS SQUIBB COMPANY-14845820

PATIENT
  Age: 82 Year
  Sex: Female

DRUGS (14)
  1. COUMADIN [Suspect]
     Indication: DEEP VEIN THROMBOSIS
     Route: 065
     Dates: start: 20030101
  2. COUMADIN [Suspect]
     Indication: STENT PLACEMENT
     Route: 065
     Dates: start: 20030101
  3. ASPIRIN [Suspect]
     Indication: STENT PLACEMENT
     Dosage: THERAPY DURATION: 1 YR 13 WKS
     Route: 065
     Dates: start: 20070615, end: 20080913
  4. PLAVIX [Suspect]
     Indication: STENT PLACEMENT
     Route: 065
     Dates: start: 20070615
  5. EXEMESTANE [Concomitant]
     Indication: BREAST CANCER
     Route: 048
     Dates: start: 20090425
  6. LIPITOR [Concomitant]
     Route: 065
     Dates: start: 19950101
  7. LEVOXYL [Concomitant]
     Route: 065
     Dates: start: 19950101
  8. CELEBREX [Concomitant]
     Route: 065
     Dates: start: 20080414
  9. MOBIC [Concomitant]
     Dosage: 8 WKS 5 DAYS
     Route: 048
     Dates: start: 20080715, end: 20080913
  10. HYDROCHLOROTHIAZIDE [Concomitant]
     Route: 065
     Dates: start: 19950101
  11. CALCIUM + VITAMIN D [Concomitant]
     Route: 065
     Dates: start: 20000101
  12. TOPROL-XL [Concomitant]
     Route: 065
     Dates: start: 20080421
  13. EFFEXOR [Concomitant]
     Route: 065
     Dates: start: 20080120
  14. POTASSIUM CHLORIDE [Concomitant]
     Route: 065
     Dates: start: 20080425

REACTIONS (3)
  - GASTRIC ULCER [None]
  - GASTRITIS [None]
  - GASTROINTESTINAL HAEMORRHAGE [None]
